FAERS Safety Report 14710089 (Version 1)
Quarter: 2018Q2

REPORT INFORMATION
  Report Type: Spontaneous
  Country: AU (occurrence: AU)
  Receive Date: 20180403
  Receipt Date: 20180403
  Transmission Date: 20180711
  Serious: Yes (Hospitalization)
  Sender: FDA-Public Use
  Company Number: AU-SA-2018SA089748

PATIENT
  Sex: Male

DRUGS (1)
  1. SELSUN GOLD [Suspect]
     Active Substance: SELENIUM SULFIDE
     Indication: DANDRUFF
     Route: 061
     Dates: start: 20180227, end: 20180311

REACTIONS (3)
  - Eye pruritus [Not Recovered/Not Resolved]
  - Ocular hyperaemia [Not Recovered/Not Resolved]
  - Skin discolouration [Not Recovered/Not Resolved]

NARRATIVE: CASE EVENT DATE: 20180307
